FAERS Safety Report 23700331 (Version 3)
Quarter: 2024Q3

REPORT INFORMATION
  Report Type: Spontaneous
  Country: US (occurrence: US)
  Receive Date: 20240403
  Receipt Date: 20240905
  Transmission Date: 20241016
  Serious: No
  Sender: Haleon PLC
  Company Number: US-HALEON-USCH2024016093

PATIENT
  Age: 30 Year
  Sex: Female

DRUGS (1)
  1. SENSODYNE RAPID RELIEF [Suspect]
     Active Substance: STANNOUS FLUORIDE
     Indication: Dental disorder prophylaxis
     Dosage: EXPDATE:202505
     Route: 065
     Dates: start: 20240322, end: 20240324

REACTIONS (5)
  - Stomatitis [Unknown]
  - Oral mucosal exfoliation [Unknown]
  - Ageusia [Unknown]
  - Glossodynia [Unknown]
  - Oral discomfort [Unknown]

NARRATIVE: CASE EVENT DATE: 20240324
